FAERS Safety Report 8064277-6 (Version None)
Quarter: 2011Q4

REPORT INFORMATION
  Report Type: 
  Country: None (occurrence: None)
  Receive Date: 20111221
  Receipt Date: 20110811
  Transmission Date: 20120403
  Serious: Yes (Life-Threatening)
  Sender: FDA-Public Use
  Company Number: 2011S1000064

PATIENT
  Age: 52 Year
  Sex: Male
  Weight: 63.5036 kg

DRUGS (4)
  1. KRYSTEXXA [Suspect]
     Indication: PRODUCT USED FOR UNKNOWN INDICATION
     Dosage: 8 MG;X1; IV
     Route: 042
     Dates: start: 20110810, end: 20110810
  2. KRYSTEXXA [Suspect]
     Indication: PRODUCT USED FOR UNKNOWN INDICATION
     Dosage: 8 MG;X1; IV
     Route: 042
     Dates: start: 20110714, end: 20110714
  3. KRYSTEXXA [Suspect]
     Indication: PRODUCT USED FOR UNKNOWN INDICATION
     Dosage: 8 MG;X1; IV
     Route: 042
     Dates: start: 20110728, end: 20110728
  4. ALLEGRA [Concomitant]

REACTIONS (2)
  - ANAPHYLACTIC REACTION [None]
  - THERAPEUTIC RESPONSE DECREASED [None]
